FAERS Safety Report 25378267 (Version 1)
Quarter: 2025Q2

REPORT INFORMATION
  Report Type: Spontaneous
  Country: US (occurrence: US)
  Receive Date: 20250530
  Receipt Date: 20250530
  Transmission Date: 20250716
  Serious: Yes (Other)
  Sender: TEVA
  Company Number: US-TEVA-VS-3333853

PATIENT
  Age: 39 Year
  Sex: Male

DRUGS (2)
  1. EPINEPHRINE [Suspect]
     Active Substance: EPINEPHRINE
     Indication: Dust allergy
     Route: 030
     Dates: start: 20250506
  2. EPINEPHRINE [Suspect]
     Active Substance: EPINEPHRINE
     Route: 030
     Dates: start: 20250517

REACTIONS (2)
  - Needle issue [Unknown]
  - Device delivery system issue [Unknown]

NARRATIVE: CASE EVENT DATE: 20250517
